FAERS Safety Report 17019899 (Version 1)
Quarter: 2019Q4

REPORT INFORMATION
  Report Type: Spontaneous
  Country: GB (occurrence: GB)
  Receive Date: 20191112
  Receipt Date: 20191112
  Transmission Date: 20200122
  Serious: No
  Sender: FDA-Public Use
  Company Number: GB-ALKEM LABORATORIES LIMITED-GB-ALKEM-2019-07529

PATIENT
  Age: 56 Year
  Sex: Female

DRUGS (1)
  1. PREGABALIN. [Suspect]
     Active Substance: PREGABALIN
     Indication: PRODUCT USED FOR UNKNOWN INDICATION
     Dosage: PRESCRIBED 600MG UP TO 3 TIMES A DAY.
     Route: 002

REACTIONS (5)
  - Balance disorder [Unknown]
  - Feeling drunk [Unknown]
  - Tremor [Unknown]
  - Dysarthria [Unknown]
  - Product dispensing error [Unknown]
